FAERS Safety Report 16676601 (Version 1)
Quarter: 2019Q3

REPORT INFORMATION
  Report Type: Spontaneous
  Country: US (occurrence: US)
  Receive Date: 20190807
  Receipt Date: 20190807
  Transmission Date: 20191004
  Serious: Yes (Other)
  Sender: FDA-Public Use
  Company Number: US-ACCORD-150452

PATIENT
  Age: 60 Year
  Sex: Male

DRUGS (2)
  1. FLUOROURACIL. [Suspect]
     Active Substance: FLUOROURACIL
     Indication: URETHRAL CANCER
     Dosage: ON DAYS 1 TO 5
  2. CISPLATIN. [Suspect]
     Active Substance: CISPLATIN
     Indication: URETHRAL CANCER
     Dosage: EVERY 21 DAYS

REACTIONS (4)
  - Dermatitis [Unknown]
  - Off label use [Unknown]
  - Decreased appetite [Unknown]
  - Perineal pain [Unknown]
